FAERS Safety Report 22257699 (Version 1)
Quarter: 2023Q2

REPORT INFORMATION
  Report Type: Report from Study
  Country: US (occurrence: None)
  Receive Date: 20230427
  Receipt Date: 20230427
  Transmission Date: 20230721
  Serious: Yes (Other)
  Sender: FDA-Public Use
  Company Number: US-ADIENNEP-2023AD000318

PATIENT
  Age: 8 Year
  Sex: Male

DRUGS (6)
  1. THIOTEPA [Suspect]
     Active Substance: THIOTEPA
     Indication: Allogenic stem cell transplantation
     Dosage: 5MG/KG GIVEN IV OVER 2H ON DAY -7
     Route: 042
  2. BUSULFAN [Suspect]
     Active Substance: BUSULFAN
     Indication: Allogenic stem cell transplantation
     Dosage: 120MG AS STARTING DOSE, 140MG AS 2ND AND 3RD DOSES ()
     Route: 042
  3. ANTI-THYMOCYTE GLOBULIN (RABBIT) NOS [Suspect]
     Active Substance: LAPINE T-LYMPHOCYTE IMMUNE GLOBULIN
     Indication: Allogenic stem cell transplantation
     Dosage: 2MG/KG/DAY GIVEN ON DAYS -3 TO -1
  4. FLUDARABINE [Suspect]
     Active Substance: FLUDARABINE PHOSPHATE
     Indication: Allogenic stem cell transplantation
     Dosage: 40MG/M2 OR 1.3MG/KG IN CHILD UNDER 10 KG,D-6 TO D-3 ()
     Route: 042
  5. TACROLIMUS [Suspect]
     Active Substance: TACROLIMUS
     Indication: Prophylaxis against graft versus host disease
     Dosage: STARTING DOSE OF 0.03MG/KG/DAY
     Route: 042
  6. METHOTREXATE [Suspect]
     Active Substance: METHOTREXATE
     Indication: Prophylaxis against graft versus host disease
     Dosage: 5 MG/M2 ON DAYS +1, +3, +6, AND +11
     Route: 042

REACTIONS (4)
  - Mucosal inflammation [Recovered/Resolved]
  - Cytomegalovirus infection [Recovered/Resolved]
  - Epstein-Barr virus infection [Recovered/Resolved]
  - COVID-19 [Recovered/Resolved]
